FAERS Safety Report 11554977 (Version 1)
Quarter: 2015Q3

REPORT INFORMATION
  Report Type: Spontaneous
  Country: US (occurrence: US)
  Receive Date: 20150903
  Receipt Date: 20150903
  Transmission Date: 20151125
  Serious: No
  Sender: FDA-Public Use
  Company Number: US-ELI_LILLY_AND_COMPANY-US201009006542

PATIENT
  Sex: Female

DRUGS (7)
  1. HUMALOG [Suspect]
     Active Substance: INSULIN LISPRO
     Dosage: UNK, AS NEEDED
     Dates: start: 20100922
  2. PREDNISONE. [Concomitant]
     Active Substance: PREDNISONE
     Dates: start: 20100919
  3. PAIN RELIEF NOS [Concomitant]
     Active Substance: CAMPHOR (SYNTHETIC)\LEVOMENTHOL\MENTHYL SALICYLATE OR CAMPHOR (SYNTHETIC)\MENTHOL\MENTHYL SALICYLATE OR MENTHOL\MENTHYL SALICYLATE
     Dates: start: 201009
  4. LANTUS [Concomitant]
     Active Substance: INSULIN GLARGINE
  5. HUMALOG [Suspect]
     Active Substance: INSULIN LISPRO
     Indication: DIABETES MELLITUS
     Dosage: UNK, AS NEEDED
  6. THYROID THERAPY [Concomitant]
     Active Substance: UNSPECIFIED INGREDIENT
  7. STATIN                             /00084401/ [Concomitant]
     Indication: BLOOD CHOLESTEROL

REACTIONS (19)
  - Chest pain [Not Recovered/Not Resolved]
  - Pruritus [Unknown]
  - Visual acuity reduced [Not Recovered/Not Resolved]
  - Gait disturbance [Unknown]
  - Blood glucose increased [Unknown]
  - Myositis [Unknown]
  - Skin exfoliation [Unknown]
  - Blood glucose decreased [Not Recovered/Not Resolved]
  - Palpitations [Recovering/Resolving]
  - Arthritis [Unknown]
  - Muscle spasms [Unknown]
  - Bone pain [Unknown]
  - Spinal osteoarthritis [Unknown]
  - Mobility decreased [Unknown]
  - Rash macular [Unknown]
  - Malaise [Unknown]
  - Dyspnoea [Unknown]
  - Oral herpes [Recovering/Resolving]
  - Cataract [Not Recovered/Not Resolved]

NARRATIVE: CASE EVENT DATE: 20050922
